FAERS Safety Report 5379825-4 (Version None)
Quarter: 2007Q3

REPORT INFORMATION
  Report Type: 
  Country: None (occurrence: None)
  Receive Date: 20070706
  Receipt Date: 20070702
  Transmission Date: 20080115
  Serious: Yes (Life-Threatening, Hospitalization)
  Sender: FDA-Public Use
  Company Number: JP-BRISTOL-MYERS SQUIBB COMPANY-13797311

PATIENT
  Age: 78 Year
  Sex: Male

DRUGS (5)
  1. TAXOL [Suspect]
     Indication: LUNG NEOPLASM MALIGNANT
     Route: 041
     Dates: start: 20070524, end: 20070524
  2. GEMZAR [Concomitant]
     Indication: PREMEDICATION
     Route: 042
     Dates: start: 20070524, end: 20070524
  3. KYTRIL [Concomitant]
     Indication: PREMEDICATION
     Route: 042
     Dates: start: 20070524, end: 20070524
  4. DECADRON [Concomitant]
     Indication: PREMEDICATION
     Route: 042
     Dates: start: 20070524, end: 20070524
  5. ZANTAC [Concomitant]
     Indication: PREMEDICATION
     Route: 042
     Dates: start: 20070524, end: 20070524

REACTIONS (3)
  - ALTERED STATE OF CONSCIOUSNESS [None]
  - TONIC CONVULSION [None]
  - URINARY INCONTINENCE [None]
